FAERS Safety Report 6486089-7 (Version None)
Quarter: 2009Q4

REPORT INFORMATION
  Report Type: 
  Country: None (occurrence: None)
  Receive Date: 20091207
  Receipt Date: 20091124
  Transmission Date: 20100525
  Serious: Yes (Hospitalization, Other)
  Sender: FDA-Public Use
  Company Number: DSU-2009-2721

PATIENT
  Sex: Female
  Weight: 74.8435 kg

DRUGS (2)
  1. WELCHOL [Suspect]
     Indication: DIARRHOEA
     Dosage: 3750 MG 91875 MG BID), PER ORAL; 2500 MG (1250 MG BID), PER ORAL
     Route: 048
     Dates: start: 20080101, end: 20090101
  2. WELCHOL [Suspect]
     Indication: DIARRHOEA
     Dosage: 3750 MG 91875 MG BID), PER ORAL; 2500 MG (1250 MG BID), PER ORAL
     Route: 048
     Dates: start: 20090101

REACTIONS (7)
  - ABDOMINAL PAIN UPPER [None]
  - ALCOHOL USE [None]
  - BACK INJURY [None]
  - BACK PAIN [None]
  - FALL [None]
  - FRACTURE [None]
  - OFF LABEL USE [None]
